FAERS Safety Report 20676818 (Version 2)
Quarter: 2022Q2

REPORT INFORMATION
  Report Type: Other
  Country: US (occurrence: None)
  Receive Date: 20220406
  Receipt Date: 20220621
  Transmission Date: 20220720
  Serious: Yes (Hospitalization)
  Sender: FDA-Public Use
  Company Number: US-ROCHE-3061665

PATIENT
  Sex: Female

DRUGS (1)
  1. OCREVUS [Suspect]
     Active Substance: OCRELIZUMAB
     Indication: Multiple sclerosis
     Dosage: 300 MG DAY 15, 600MG Q 6 MONTHS?600MG IN 500ML 0.990 NACL START @ 40 PER HR INCREASE BY 90ML Q30 MIN
     Route: 042
     Dates: start: 20180315

REACTIONS (2)
  - Sepsis [Unknown]
  - Cellulitis [Unknown]
